FAERS Safety Report 23691198 (Version 1)
Quarter: 2024Q2

REPORT INFORMATION
  Report Type: Spontaneous
  Country: US (occurrence: US)
  Receive Date: 20240401
  Receipt Date: 20240401
  Transmission Date: 20240716
  Serious: No
  Sender: FDA-Public Use
  Company Number: US-SSPHARMA-2024USSSP00016

PATIENT

DRUGS (1)
  1. ROCALTROL [Suspect]
     Active Substance: CALCITRIOL
     Indication: Blood calcium decreased

REACTIONS (2)
  - Product availability issue [Unknown]
  - Muscle spasms [Unknown]
